FAERS Safety Report 6802878-0 (Version None)
Quarter: 2010Q2

REPORT INFORMATION
  Report Type: 
  Country: None (occurrence: None)
  Receive Date: 20100628
  Receipt Date: 20100621
  Transmission Date: 20101027
  Serious: Yes (Hospitalization)
  Sender: FDA-Public Use
  Company Number: GB-BAYER-201025466GPV

PATIENT
  Age: 52 Year
  Sex: Female

DRUGS (2)
  1. BETAFERON [Suspect]
     Indication: DRUG USE FOR UNKNOWN INDICATION
     Dates: start: 20030501, end: 20100401
  2. BETAFERON [Suspect]
     Dates: start: 20100101

REACTIONS (2)
  - ENDOMETRIAL HYPERPLASIA [None]
  - VAGINAL HAEMORRHAGE [None]
